FAERS Safety Report 12256948 (Version 1)
Quarter: 2016Q2

REPORT INFORMATION
  Report Type: Spontaneous
  Country: US (occurrence: None)
  Receive Date: 20160411
  Receipt Date: 20160411
  Transmission Date: 20160815
  Serious: No
  Sender: FDA-Public Use
  Company Number: None

PATIENT
  Age: 60 Year
  Sex: Female
  Weight: 106.6 kg

DRUGS (18)
  1. FLUOXETINE [Concomitant]
     Active Substance: FLUOXETINE HYDROCHLORIDE
  2. KRILL [Concomitant]
  3. TURMERIC [Concomitant]
     Active Substance: TURMERIC
  4. MAGNESIUM [Concomitant]
     Active Substance: MAGNESIUM
  5. RED YEAST RICE [Concomitant]
     Active Substance: DIETARY SUPPLEMENT
  6. HYDROCODONE/ACETAMINOPHEN 10-325, 10 MG [Suspect]
     Active Substance: ACETAMINOPHEN\HYDROCODONE
     Indication: PAIN
     Route: 048
     Dates: start: 20151001
  7. PANTOPRAZOLE [Concomitant]
     Active Substance: PANTOPRAZOLE SODIUM
  8. DHEA [Concomitant]
     Active Substance: PRASTERONE
  9. VITAMINS [Concomitant]
     Active Substance: VITAMINS
  10. VITAMIN D [Concomitant]
     Active Substance: CHOLECALCIFEROL
  11. FOLATE [Concomitant]
     Active Substance: FOLATE SODIUM
  12. NATURE-THROID [Concomitant]
     Active Substance: THYROID, PORCINE
  13. HYDROCODONE [Concomitant]
     Active Substance: HYDROCODONE
  14. VITAMIN C [Concomitant]
     Active Substance: ASCORBIC ACID
  15. VITAMIN K [Concomitant]
     Active Substance: PHYTONADIONE
  16. VITAMIN B12 [Concomitant]
     Active Substance: CYANOCOBALAMIN
  17. DESSICATED LIVER [Concomitant]
  18. VITAMIN A [Concomitant]
     Active Substance: VITAMIN A

REACTIONS (2)
  - Drug ineffective [None]
  - Product formulation issue [None]
